FAERS Safety Report 5541720-5 (Version None)
Quarter: 2007Q4

REPORT INFORMATION
  Report Type: 
  Country: None (occurrence: None)
  Receive Date: 20071210
  Receipt Date: 20071205
  Transmission Date: 20080405
  Serious: Yes (Hospitalization)
  Sender: FDA-Public Use
  Company Number: AU-BRISTOL-MYERS SQUIBB COMPANY-13151493

PATIENT
  Age: 81 Year
  Sex: Male
  Weight: 67 kg

DRUGS (3)
  1. IRBESARTAN [Suspect]
     Indication: HYPERTENSION
     Dates: start: 20031114
  2. WARFARIN SODIUM [Suspect]
     Indication: PROPHYLAXIS
     Dates: start: 20031114, end: 20050919
  3. BLINDED: PLACEBO [Suspect]
     Indication: HYPERTENSION
     Dates: start: 20031114

REACTIONS (3)
  - COLONIC POLYP [None]
  - DIVERTICULUM INTESTINAL [None]
  - HAEMORRHAGE [None]
